FAERS Safety Report 9103439 (Version 1)
Quarter: 2013Q1

REPORT INFORMATION
  Report Type: Spontaneous
  Country: US (occurrence: US)
  Receive Date: 20130219
  Receipt Date: 20130219
  Transmission Date: 20140127
  Serious: No
  Sender: FDA-Public Use
  Company Number: US-TEVA-385134USA

PATIENT
  Sex: Female

DRUGS (2)
  1. PROAIR HFA [Suspect]
     Indication: DYSPNOEA
     Dosage: AS NEEDED
  2. QVAR [Concomitant]

REACTIONS (1)
  - Disturbance in attention [Unknown]
